FAERS Safety Report 8804703 (Version 1)
Quarter: 2012Q4

REPORT INFORMATION
  Report Type: Report from Study
  Country: US (occurrence: US)
  Receive Date: 20120924
  Receipt Date: 20120924
  Transmission Date: 20130627
  Serious: Yes (Other)
  Sender: FDA-Public Use
  Company Number: US-ABBOTT-12P-163-0980120-00

PATIENT
  Age: 54 Year
  Sex: Female

DRUGS (15)
  1. HUMIRA [Suspect]
     Indication: CROHN^S DISEASE
     Dates: start: 201112, end: 201112
  2. HUMIRA [Suspect]
     Dates: start: 201204
  3. 6-MP [Suspect]
     Indication: PRODUCT USED FOR UNKNOWN INDICATION
  4. LISINOPRIL [Concomitant]
     Indication: PRODUCT USED FOR UNKNOWN INDICATION
     Dosage: Daily
  5. HYDROCHLOROTHIAZIDE [Concomitant]
     Indication: HYPERTENSION
     Dosage: Daily
  6. HYOSCYAMINE [Concomitant]
     Indication: MUSCLE SPASMS
  7. ONDANESTERON HCL [Concomitant]
     Indication: NAUSEA
  8. VALIUM [Concomitant]
     Indication: IRRITABLE BOWEL SYNDROME
  9. DIPHENOXYLATE/ATROPINE [Concomitant]
     Indication: DIARRHOEA
  10. IMODIUM [Concomitant]
     Indication: DIARRHOEA
  11. OTC GAS PILL [Concomitant]
     Indication: FLATULENCE
  12. VITAMIN C [Concomitant]
     Indication: VITAMIN SUPPLEMENTATION
  13. VITAMIN B [Concomitant]
     Indication: VITAMIN SUPPLEMENTATION
  14. VITAMIN E [Concomitant]
     Indication: VITAMIN SUPPLEMENTATION
  15. EVENING PRIMROSE OIL [Concomitant]
     Indication: MENOPAUSE

REACTIONS (9)
  - Intestinal obstruction [Not Recovered/Not Resolved]
  - Pruritus [Unknown]
  - Hepatic enzyme increased [Unknown]
  - Blood triglycerides increased [Unknown]
  - Gastrointestinal viral infection [Unknown]
  - Diarrhoea [Unknown]
  - Abdominal distension [Unknown]
  - Muscle spasms [Unknown]
  - Flatulence [Unknown]
